FAERS Safety Report 5965623-7 (Version None)
Quarter: 2008Q4

REPORT INFORMATION
  Report Type: 
  Country: None (occurrence: None)
  Receive Date: 20081121
  Receipt Date: 20081121
  Transmission Date: 20090506
  Serious: Yes (Other)
  Sender: FDA-Public Use
  Company Number: None

PATIENT
  Age: 45 Year
  Sex: Female
  Weight: 88.905 kg

DRUGS (1)
  1. AVELOX [Suspect]
     Indication: SINUSITIS
     Dosage: 1 TABLET ONCE A DAY PO
     Route: 048
     Dates: start: 20081118, end: 20081118

REACTIONS (16)
  - ABDOMINAL DISCOMFORT [None]
  - BACK INJURY [None]
  - CONFUSIONAL STATE [None]
  - DIARRHOEA [None]
  - DISORIENTATION [None]
  - DIZZINESS [None]
  - HEAD INJURY [None]
  - HYPOAESTHESIA [None]
  - JOINT INJURY [None]
  - LOSS OF CONSCIOUSNESS [None]
  - MEMORY IMPAIRMENT [None]
  - NECK INJURY [None]
  - PARAESTHESIA [None]
  - REPETITIVE SPEECH [None]
  - SYNCOPE [None]
  - TREMOR [None]
